FAERS Safety Report 7930994-9 (Version None)
Quarter: 2011Q4

REPORT INFORMATION
  Report Type: 
  Country: None (occurrence: None)
  Receive Date: 20111121
  Receipt Date: 20111115
  Transmission Date: 20120403
  Serious: Yes (Hospitalization)
  Sender: FDA-Public Use
  Company Number: GB-GENZYME-CLOF-1001907

PATIENT

DRUGS (3)
  1. EVOLTRA [Suspect]
     Indication: ACUTE MYELOID LEUKAEMIA
     Dosage: UNK
     Route: 065
     Dates: start: 20071217
  2. EVOLTRA [Suspect]
     Dosage: UNK
     Route: 065
  3. EVOLTRA [Suspect]
     Dosage: UNK
     Route: 065

REACTIONS (3)
  - DIARRHOEA [None]
  - PYREXIA [None]
  - FAECAL INCONTINENCE [None]
